FAERS Safety Report 5463557-8 (Version None)
Quarter: 2007Q3

REPORT INFORMATION
  Report Type: 
  Country: None (occurrence: None)
  Receive Date: 20070919
  Receipt Date: 20070912
  Transmission Date: 20080115
  Serious: Yes (Death)
  Sender: FDA-Public Use
  Company Number: 163-21880-07090606

PATIENT
  Age: 79 Year
  Sex: Male

DRUGS (1)
  1. REVLIMID [Suspect]
     Indication: ACUTE MYELOID LEUKAEMIA
     Dosage: 35 MG, DAILY, ORAL
     Route: 048
     Dates: start: 20070906, end: 20070911

REACTIONS (4)
  - ACUTE MYELOID LEUKAEMIA [None]
  - ELECTROMECHANICAL DISSOCIATION [None]
  - MALIGNANT NEOPLASM PROGRESSION [None]
  - SEPSIS [None]
